FAERS Safety Report 15781200 (Version 1)
Quarter: 2019Q1

REPORT INFORMATION
  Report Type: Spontaneous
  Country: EG (occurrence: EG)
  Receive Date: 20190102
  Receipt Date: 20190102
  Transmission Date: 20190417
  Serious: Yes (Other)
  Sender: FDA-Public Use
  Company Number: EG-SA-2018SA395437

PATIENT
  Age: 23 Year
  Sex: Female

DRUGS (1)
  1. CLOMIFENE CITRATE [Suspect]
     Active Substance: CLOMIPHENE
     Indication: OVULATION INDUCTION
     Dosage: UNK, BID

REACTIONS (10)
  - Tubal rupture [Recovered/Resolved]
  - Ectopic pregnancy [Recovered/Resolved]
  - Abdominal tenderness [Recovered/Resolved]
  - Amenorrhoea [Recovered/Resolved]
  - Peritoneal haemorrhage [Recovered/Resolved]
  - Adnexa uteri mass [Recovered/Resolved]
  - Ovarian cyst [Recovered/Resolved]
  - Abdominal pain lower [Recovered/Resolved]
  - Vomiting [Recovered/Resolved]
  - Abdominal rigidity [Recovered/Resolved]
